FAERS Safety Report 9716234 (Version 1)
Quarter: 2013Q4

REPORT INFORMATION
  Report Type: Spontaneous
  Country: GB (occurrence: GB)
  Receive Date: 20131127
  Receipt Date: 20131127
  Transmission Date: 20140711
  Serious: Yes (Other)
  Sender: FDA-Public Use
  Company Number: GB-BAYER-2013-144052

PATIENT
  Age: 26 Year
  Sex: Female

DRUGS (4)
  1. ACETYLSALICYLIC ACID({=100 MG) [Suspect]
     Dosage: 75 MG, UNK
  2. LEVOTHYROXINE [Concomitant]
     Dosage: 50 ?G
  3. LEVOTHYROXINE [Concomitant]
     Dosage: 100 ?G
  4. HEPARIN [Concomitant]
     Dosage: 40 MG, QD

REACTIONS (2)
  - Maternal exposure during pregnancy [None]
  - Stillbirth [None]
